FAERS Safety Report 5375055-0 (Version None)
Quarter: 2007Q2

REPORT INFORMATION
  Report Type: 
  Country: None (occurrence: None)
  Receive Date: 20070629
  Receipt Date: 20070406
  Transmission Date: 20071010
  Serious: No
  Sender: FDA-Public Use
  Company Number: A0646173A

PATIENT
  Age: 64 Year
  Sex: Male

DRUGS (2)
  1. AVANDARYL [Suspect]
     Dosage: 1TAB TWICE PER DAY
     Route: 048
     Dates: start: 20060201
  2. SIMVASTATIN [Concomitant]

REACTIONS (1)
  - BLOOD GLUCOSE ABNORMAL [None]
